FAERS Safety Report 7397555-4 (Version None)
Quarter: 2011Q2

REPORT INFORMATION
  Report Type: 
  Country: None (occurrence: None)
  Receive Date: 20110406
  Receipt Date: 20110406
  Transmission Date: 20111010
  Serious: Yes (Hospitalization, Other)
  Sender: FDA-Public Use
  Company Number: PL-PFIZER INC-2007107672

PATIENT
  Age: 56 Year
  Sex: Female
  Weight: 85 kg

DRUGS (4)
  1. SUNITINIB MALATE [Suspect]
     Indication: RENAL CELL CARCINOMA
     Dosage: 25 MG, 1X/DAY
     Route: 048
     Dates: start: 20060516
  2. ENARENAL [Concomitant]
     Route: 048
     Dates: start: 20070418, end: 20071205
  3. POLOCARD [Concomitant]
     Route: 048
     Dates: end: 20071205
  4. DIPROLEN [Concomitant]
     Route: 061
     Dates: start: 20061012

REACTIONS (1)
  - HYPERTENSIVE CRISIS [None]
